FAERS Safety Report 5953769-9 (Version None)
Quarter: 2008Q4

REPORT INFORMATION
  Report Type: 
  Country: None (occurrence: None)
  Receive Date: 20081114
  Receipt Date: 20081105
  Transmission Date: 20090506
  Serious: Yes (Hospitalization, Congenital Anomaly)
  Sender: FDA-Public Use
  Company Number: CN-ASTRAZENECA-2008AP08633

PATIENT
  Age: 44 Year
  Sex: Female

DRUGS (2)
  1. NAROPIN [Suspect]
     Indication: SPINAL ANAESTHESIA
     Route: 037
     Dates: start: 20081024, end: 20081024
  2. LIDOCAINE HYDROCHLORIDE [Suspect]
     Indication: EPIDURAL ANAESTHESIA
     Route: 008
     Dates: start: 20081024, end: 20081024

REACTIONS (4)
  - DIZZINESS [None]
  - HEADACHE [None]
  - MUSCULOSKELETAL DISCOMFORT [None]
  - SENSORIMOTOR DISORDER [None]
